FAERS Safety Report 11150749 (Version 8)
Quarter: 2017Q4

REPORT INFORMATION
  Report Type: Report from Study
  Country: CA (occurrence: CA)
  Receive Date: 20150601
  Receipt Date: 20171205
  Transmission Date: 20180320
  Serious: Yes (Other)
  Sender: FDA-Public Use
  Company Number: CA-ROCHE-1518882

PATIENT
  Age: 56 Year
  Sex: Female

DRUGS (16)
  1. ACTEMRA [Suspect]
     Active Substance: TOCILIZUMAB
     Indication: RHEUMATOID ARTHRITIS
     Route: 042
     Dates: start: 20141211, end: 20150427
  2. ORENCIA [Suspect]
     Active Substance: ABATACEPT
     Indication: PRODUCT USED FOR UNKNOWN INDICATION
     Route: 065
  3. RITUXAN [Suspect]
     Active Substance: RITUXIMAB
     Indication: RHEUMATOID ARTHRITIS
     Dosage: NEXT DOSE ON 03/MAY/2017
     Route: 042
     Dates: start: 20150708
  4. ACETAMINOPHEN. [Concomitant]
     Active Substance: ACETAMINOPHEN
     Indication: PREMEDICATION
     Route: 048
     Dates: start: 20150708
  5. NEXIUM [Concomitant]
     Active Substance: ESOMEPRAZOLE MAGNESIUM
  6. METHOTREXATE. [Concomitant]
     Active Substance: METHOTREXATE
  7. MAXALT [Concomitant]
     Active Substance: RIZATRIPTAN BENZOATE
  8. ACTEMRA [Suspect]
     Active Substance: TOCILIZUMAB
     Route: 042
     Dates: start: 20150107
  9. ACTEMRA [Suspect]
     Active Substance: TOCILIZUMAB
     Route: 042
     Dates: start: 20150202, end: 20150427
  10. PREMARIN [Concomitant]
     Active Substance: ESTROGENS, CONJUGATED
  11. PREDNISONE. [Concomitant]
     Active Substance: PREDNISONE
  12. FOLIC ACID. [Concomitant]
     Active Substance: FOLIC ACID
  13. SYNTHROID [Concomitant]
     Active Substance: LEVOTHYROXINE SODIUM
  14. METHYLPREDNISOLONE. [Concomitant]
     Active Substance: METHYLPREDNISOLONE
     Indication: PREMEDICATION
     Route: 042
     Dates: start: 20150708
  15. NAPROXEN. [Concomitant]
     Active Substance: NAPROXEN
  16. DIPHENHYDRAMINE HCL [Concomitant]
     Active Substance: DIPHENHYDRAMINE HYDROCHLORIDE
     Indication: PREMEDICATION
     Route: 048
     Dates: start: 20150708

REACTIONS (13)
  - Pruritus [Not Recovered/Not Resolved]
  - Headache [Not Recovered/Not Resolved]
  - Abdominal pain [Not Recovered/Not Resolved]
  - Drug ineffective [Unknown]
  - Haemorrhage [Unknown]
  - Blood pressure increased [Unknown]
  - Head discomfort [Recovered/Resolved]
  - Infusion related reaction [Unknown]
  - Arthralgia [Unknown]
  - Rheumatoid arthritis [Not Recovered/Not Resolved]
  - Diverticulitis [Unknown]
  - Feeling hot [Recovered/Resolved]
  - Somnolence [Recovered/Resolved]

NARRATIVE: CASE EVENT DATE: 2015
